FAERS Safety Report 7946768 (Version 6)
Quarter: 2014Q2

REPORT INFORMATION
  Report Type: Spontaneous
  Country: FR (occurrence: FR)
  Receive Date: 20110516
  Receipt Date: 20140421
  Transmission Date: 20141212
  Serious: Yes (Death, Hospitalization)
  Sender: FDA-Public Use
  Company Number: FR-UCBSA-032231

PATIENT
  Age: 56 Year
  Sex: Male

DRUGS (13)
  1. VIMPAT [Suspect]
     Indication: EPILEPSY
     Route: 048
  2. VIMPAT [Suspect]
     Indication: POISONING
     Route: 048
  3. VIMPAT [Suspect]
     Indication: EPILEPSY
     Dosage: 70 TABLETS, TOTAL INGESTION:7 G
     Route: 048
     Dates: start: 201104, end: 201104
  4. VIMPAT [Suspect]
     Indication: POISONING
     Dosage: 70 TABLETS, TOTAL INGESTION:7 G
     Route: 048
     Dates: start: 201104, end: 201104
  5. AMLODIPINE [Suspect]
  6. NEURONTIN [Concomitant]
     Indication: EPILEPSY
     Route: 048
     Dates: end: 201104
  7. LAMICTAL [Concomitant]
     Indication: EPILEPSY
     Route: 048
     Dates: end: 201104
  8. GARDENAL [Concomitant]
     Indication: EPILEPSY
     Route: 048
     Dates: end: 201104
  9. CARBAMAZEPINE [Concomitant]
  10. CLONAZEPAM [Concomitant]
  11. ATORVASTATIN [Concomitant]
  12. VALSARTAN [Concomitant]
  13. LOXEN [Concomitant]
     Indication: POISONING
     Route: 048
     Dates: end: 201104

REACTIONS (5)
  - Completed suicide [Fatal]
  - Intentional overdose [Fatal]
  - Distributive shock [Fatal]
  - Multi-organ failure [Fatal]
  - Cardiac arrest [Recovered/Resolved]
